FAERS Safety Report 9665784 (Version 1)
Quarter: 2013Q4

REPORT INFORMATION
  Report Type: Spontaneous
  Country: TW (occurrence: TW)
  Receive Date: 20131104
  Receipt Date: 20131104
  Transmission Date: 20140711
  Serious: Yes (Hospitalization)
  Sender: FDA-Public Use
  Company Number: PHHY2013TW123063

PATIENT
  Age: 33 Year
  Sex: Female

DRUGS (1)
  1. CARBAMAZEPINE [Suspect]
     Indication: NEURALGIA

REACTIONS (9)
  - Basedow^s disease [Recovered/Resolved]
  - Palpitations [Recovered/Resolved]
  - Insomnia [Recovered/Resolved]
  - Weight decreased [Recovered/Resolved]
  - Goitre [Recovered/Resolved]
  - Hyperthyroidism [Recovered/Resolved]
  - Endocrine ophthalmopathy [Recovered/Resolved]
  - Vision blurred [Recovered/Resolved]
  - Drug reaction with eosinophilia and systemic symptoms [Unknown]
